FAERS Safety Report 20977414 (Version 3)
Quarter: 2023Q1

REPORT INFORMATION
  Report Type: Spontaneous
  Country: CA (occurrence: None)
  Receive Date: 20220617
  Receipt Date: 20230219
  Transmission Date: 20230418
  Serious: Yes (Other)
  Sender: FDA-Public Use
  Company Number: CA-ROCHE-3070197

PATIENT
  Age: 70 Year
  Sex: Male

DRUGS (13)
  1. RITUXIMAB [Suspect]
     Active Substance: RITUXIMAB
     Indication: Rheumatoid arthritis
     Route: 042
  2. BENADRYL [Concomitant]
     Active Substance: DIPHENHYDRAMINE HYDROCHLORIDE
     Indication: Premedication
     Route: 048
  3. CELEBREX [Concomitant]
     Active Substance: CELECOXIB
  4. FOLIC ACID [Concomitant]
     Active Substance: FOLIC ACID
  5. METHOTREXATE [Concomitant]
     Active Substance: METHOTREXATE
     Route: 037
  6. METHOTREXATE [Concomitant]
     Active Substance: METHOTREXATE
     Route: 048
  7. PREDNISONE [Concomitant]
     Active Substance: PREDNISONE
  8. RAMIPRIL [Concomitant]
     Active Substance: RAMIPRIL
  9. SOLU-MEDROL [Concomitant]
     Active Substance: METHYLPREDNISOLONE SODIUM SUCCINATE
     Indication: Premedication
     Route: 042
  10. TYLENOL [Concomitant]
     Active Substance: ACETAMINOPHEN
     Indication: Premedication
     Route: 048
  11. VITAMIN D3 [Concomitant]
     Active Substance: CHOLECALCIFEROL
  12. ACETAMINOPHEN [Concomitant]
     Active Substance: ACETAMINOPHEN
     Route: 048
  13. OMEGA 3 [Concomitant]
     Active Substance: CAPSAICIN

REACTIONS (15)
  - Prostate infection [Recovered/Resolved]
  - Urethritis [Recovered/Resolved]
  - Body temperature increased [Recovered/Resolved]
  - Therapeutic response shortened [Recovered/Resolved]
  - Blood pressure fluctuation [Recovered/Resolved]
  - Blood pressure systolic increased [Recovered/Resolved]
  - Urinary tract infection [Recovered/Resolved]
  - Blood pressure increased [Recovered/Resolved]
  - Joint warmth [Recovered/Resolved]
  - Heart rate increased [Recovered/Resolved]
  - Blood pressure decreased [Recovered/Resolved]
  - Infusion related reaction [Recovered/Resolved]
  - Blood pressure systolic abnormal [Recovered/Resolved]
  - Internal haemorrhage [Recovered/Resolved]
  - Infection [Recovered/Resolved]
